FAERS Safety Report 9496025 (Version 3)
Quarter: 2013Q4

REPORT INFORMATION
  Report Type: Spontaneous
  Country: US (occurrence: US)
  Receive Date: 20130904
  Receipt Date: 20131113
  Transmission Date: 20140711
  Serious: No
  Sender: FDA-Public Use
  Company Number: US-BIOGENIDEC-2013BI080385

PATIENT
  Age: 49 Year
  Sex: Female

DRUGS (3)
  1. TYSABRI [Suspect]
     Indication: MULTIPLE SCLEROSIS
     Route: 042
     Dates: start: 20110201, end: 20130107
  2. TYSABRI [Suspect]
     Indication: MULTIPLE SCLEROSIS
     Route: 042
     Dates: start: 20130906
  3. REGULAR INSULIN [Concomitant]
     Indication: TYPE 1 DIABETES MELLITUS

REACTIONS (12)
  - Multiple sclerosis relapse [Recovered/Resolved]
  - Blindness [Unknown]
  - Balance disorder [Unknown]
  - Diabetes mellitus [Not Recovered/Not Resolved]
  - Feeling abnormal [Unknown]
  - Glycosylated haemoglobin increased [Unknown]
  - Vision blurred [Recovered/Resolved]
  - Local swelling [Not Recovered/Not Resolved]
  - Eye inflammation [Recovered/Resolved]
  - Weight increased [Not Recovered/Not Resolved]
  - Diplopia [Recovered/Resolved]
  - Visual impairment [Recovered/Resolved]
